FAERS Safety Report 20512116 (Version 2)
Quarter: 2022Q1

REPORT INFORMATION
  Report Type: Spontaneous
  Country: US (occurrence: US)
  Receive Date: 20220224
  Receipt Date: 20220311
  Transmission Date: 20220423
  Serious: Yes (Other)
  Sender: FDA-Public Use
  Company Number: US-GSKCCFUS-Case-01302524_AE-75885

PATIENT
  Age: 59 Year
  Sex: Male

DRUGS (1)
  1. NUCALA [Suspect]
     Active Substance: MEPOLIZUMAB
     Indication: Product used for unknown indication
     Dosage: 100 MG
     Route: 058
     Dates: start: 202112

REACTIONS (5)
  - Pulmonary oedema [Unknown]
  - Lower respiratory tract infection [Recovered/Resolved]
  - Eosinophil count increased [Unknown]
  - SARS-CoV-2 test positive [Recovered/Resolved]
  - Coronavirus infection [Recovered/Resolved]

NARRATIVE: CASE EVENT DATE: 20220114
